FAERS Safety Report 9770442 (Version 2)
Quarter: 2013Q4

REPORT INFORMATION
  Report Type: Spontaneous
  Country: US (occurrence: US)
  Receive Date: 20131218
  Receipt Date: 20131218
  Transmission Date: 20140711
  Serious: No
  Sender: FDA-Public Use
  Company Number: US-BAYER-2013-152532

PATIENT
  Sex: Male

DRUGS (4)
  1. STAXYN (FDT/ODT) [Suspect]
     Dosage: 1 DF, UNK
     Route: 048
  2. TRICOR [Concomitant]
     Indication: BLOOD TRIGLYCERIDES ABNORMAL
  3. PRAVASTATIN [Concomitant]
     Indication: BLOOD CHOLESTEROL
  4. METFORMIN [Concomitant]
     Indication: TYPE 2 DIABETES MELLITUS

REACTIONS (3)
  - Abdominal discomfort [Not Recovered/Not Resolved]
  - Lethargy [Not Recovered/Not Resolved]
  - Nasal congestion [None]
